FAERS Safety Report 8464683-1 (Version None)
Quarter: 2012Q2

REPORT INFORMATION
  Report Type: 
  Country: None (occurrence: None)
  Receive Date: 20120626
  Receipt Date: 20120618
  Transmission Date: 20120825
  Serious: Yes (Other)
  Sender: FDA-Public Use
  Company Number: GB-JNJFOC-20111008462

PATIENT
  Sex: Male

DRUGS (2)
  1. RIFAMPICIN [Suspect]
     Indication: ANTIBIOTIC PROPHYLAXIS
     Route: 065
  2. STELARA [Suspect]
     Indication: PSORIASIS
     Route: 058
     Dates: start: 20110301

REACTIONS (1)
  - LIVER FUNCTION TEST ABNORMAL [None]
